FAERS Safety Report 4840299-0 (Version None)
Quarter: 2005Q4

REPORT INFORMATION
  Report Type: 
  Country: None (occurrence: None)
  Receive Date: 20051020
  Receipt Date: 20050908
  Transmission Date: 20060501
  Serious: No
  Sender: FDA-Public Use
  Company Number: 2005BH001577

PATIENT
  Sex: Female

DRUGS (6)
  1. EXTRANEAL [Suspect]
     Indication: RENAL FAILURE
     Dosage: 2L; EVERY DAY; IP
     Route: 033
     Dates: start: 20050816
  2. SYNTHROID [Concomitant]
  3. KLONOPIN [Concomitant]
  4. EPOGEN [Concomitant]
  5. ATENOLOL [Concomitant]
  6. RENAGEL [Concomitant]

REACTIONS (2)
  - DERMATITIS EXFOLIATIVE [None]
  - ERYTHEMA [None]
